FAERS Safety Report 18398344 (Version 1)
Quarter: 2020Q4

REPORT INFORMATION
  Report Type: Spontaneous
  Country: US (occurrence: US)
  Receive Date: 20201019
  Receipt Date: 20201019
  Transmission Date: 20210114
  Serious: No
  Sender: FDA-Public Use
  Company Number: None

PATIENT
  Age: 58 Year
  Sex: Female

DRUGS (13)
  1. ATORVASTATIN, [Concomitant]
  2. FUROSEMIDE, [Concomitant]
  3. NARCAN, [Concomitant]
  4. DULOXETINE, [Concomitant]
  5. METOPROL SUC ER, [Concomitant]
  6. NITROFURANTIN, [Concomitant]
  7. FOLIC ACID, [Concomitant]
  8. METHOTREXATE, [Concomitant]
  9. LISINOPRIL. [Concomitant]
     Active Substance: LISINOPRIL
  10. XELJANZ XR [Suspect]
     Active Substance: TOFACITINIB CITRATE
     Indication: RHEUMATOID ARTHRITIS
     Dosage: ??          OTHER DOSE:1 TAB;?
     Route: 048
     Dates: start: 20171215
  11. PREGABALIN. [Concomitant]
     Active Substance: PREGABALIN
  12. ELIQUIS, [Concomitant]
  13. TRAMADOL HCL [Concomitant]
     Active Substance: TRAMADOL HYDROCHLORIDE

REACTIONS (3)
  - Foot operation [None]
  - Condition aggravated [None]
  - Therapy interrupted [None]

NARRATIVE: CASE EVENT DATE: 202008
